FAERS Safety Report 19471340 (Version 1)
Quarter: 2021Q2

REPORT INFORMATION
  Report Type: Spontaneous
  Country: DE (occurrence: DE)
  Receive Date: 20210628
  Receipt Date: 20210628
  Transmission Date: 20210717
  Serious: Yes (Other)
  Sender: FDA-Public Use
  Company Number: DE-009507513-2106DEU006300

PATIENT
  Age: 72 Year
  Sex: Female

DRUGS (3)
  1. PEMETREXED. [Suspect]
     Active Substance: PEMETREXED
     Indication: LUNG ADENOCARCINOMA STAGE IV
     Dosage: 500 MG/M2 I.V. DAY 1
     Route: 042
     Dates: start: 202006, end: 2021
  2. CARBOPLATIN. [Suspect]
     Active Substance: CARBOPLATIN
     Indication: LUNG ADENOCARCINOMA STAGE IV
     Dosage: AUC 5 I.V DAY 1
     Route: 042
     Dates: start: 202006, end: 202010
  3. PEMBROLIZUMAB. [Suspect]
     Active Substance: PEMBROLIZUMAB
     Indication: LUNG ADENOCARCINOMA STAGE IV
     Dosage: 200 MG FIXED DOSE I.V.
     Route: 042
     Dates: start: 201911, end: 202006

REACTIONS (3)
  - Malignant neoplasm progression [Unknown]
  - Ill-defined disorder [Unknown]
  - Pancytopenia [Unknown]

NARRATIVE: CASE EVENT DATE: 2020
